FAERS Safety Report 22599996 (Version 5)
Quarter: 2024Q3

REPORT INFORMATION
  Report Type: Spontaneous
  Country: US (occurrence: US)
  Receive Date: 20230614
  Receipt Date: 20240705
  Transmission Date: 20241016
  Serious: Yes (Other)
  Sender: OTSUKA
  Company Number: US-OTSUKA-2023_015411

PATIENT
  Age: 20 Year
  Sex: Male
  Weight: 70.31 kg

DRUGS (7)
  1. REXULTI [Suspect]
     Active Substance: BREXPIPRAZOLE
     Indication: Depression
     Dosage: 1 MG, QD
     Route: 065
     Dates: start: 2022
  2. REXULTI [Suspect]
     Active Substance: BREXPIPRAZOLE
     Indication: Major depression
     Dosage: 1 MG, QD
     Route: 065
     Dates: start: 20221017, end: 20230120
  3. REXULTI [Suspect]
     Active Substance: BREXPIPRAZOLE
     Dosage: UNK
     Route: 065
     Dates: start: 202301
  4. REXULTI [Suspect]
     Active Substance: BREXPIPRAZOLE
     Dosage: 1 MG, QD
     Route: 065
     Dates: start: 202302
  5. WELLBUTRIN [Suspect]
     Active Substance: BUPROPION HYDROCHLORIDE
     Indication: Major depression
     Dosage: UNK
     Route: 065
     Dates: start: 2023
  6. WELLBUTRIN [Suspect]
     Active Substance: BUPROPION HYDROCHLORIDE
     Dosage: 100 MG, BID (TAKE ONE TABLET WITH BREAKFAST AND ONE TABLET BEFORE PM)
     Route: 065
     Dates: start: 20221121, end: 20230120
  7. WELLBUTRIN [Suspect]
     Active Substance: BUPROPION HYDROCHLORIDE
     Dosage: UNK
     Route: 065

REACTIONS (9)
  - Erectile dysfunction [Recovering/Resolving]
  - Sexual activity decreased [Recovering/Resolving]
  - Withdrawal syndrome [Not Recovered/Not Resolved]
  - Frustration tolerance decreased [Unknown]
  - Organic erectile dysfunction [Recovering/Resolving]
  - Feeling abnormal [Unknown]
  - Photophobia [Recovering/Resolving]
  - Pollakiuria [Recovered/Resolved]
  - Drug ineffective [Unknown]

NARRATIVE: CASE EVENT DATE: 20221017
